FAERS Safety Report 6692817-8 (Version None)
Quarter: 2010Q2

REPORT INFORMATION
  Report Type: 
  Country: None (occurrence: None)
  Receive Date: 20100422
  Receipt Date: 20100419
  Transmission Date: 20101027
  Serious: Yes (Hospitalization)
  Sender: FDA-Public Use
  Company Number: DE-JNJFOC-20091004735

PATIENT
  Age: 53 Year
  Sex: Male

DRUGS (5)
  1. ABCIXIMAB [Suspect]
     Indication: MYOCARDIAL INFARCTION
     Route: 022
  2. ABCIXIMAB [Suspect]
     Route: 042
  3. ACETYLSALICYLIC ACID [Concomitant]
     Indication: DRUG USE FOR UNKNOWN INDICATION
  4. CLOPIDOGREL [Concomitant]
     Indication: DRUG USE FOR UNKNOWN INDICATION
  5. HEPARIN [Concomitant]
     Indication: DRUG USE FOR UNKNOWN INDICATION

REACTIONS (2)
  - CARDIAC TAMPONADE [None]
  - INCORRECT ROUTE OF DRUG ADMINISTRATION [None]
